FAERS Safety Report 4460291-8 (Version None)
Quarter: 2004Q3

REPORT INFORMATION
  Report Type: 
  Country: None (occurrence: None)
  Receive Date: 20040928
  Receipt Date: 20040302
  Transmission Date: 20050211
  Serious: No
  Sender: FDA-Public Use
  Company Number: US-GLAXOSMITHKLINE-A0500834A

PATIENT
  Age: 53 Year
  Sex: Female

DRUGS (3)
  1. SEREVENT [Suspect]
     Dosage: 1PUFF TWICE PER DAY
     Route: 055
     Dates: start: 20031101
  2. CLARINEX [Concomitant]
  3. RHINOCORT [Concomitant]

REACTIONS (4)
  - COUGH [None]
  - HYPOAESTHESIA [None]
  - PALPITATIONS [None]
  - PRODUCTIVE COUGH [None]
